FAERS Safety Report 6151508-2 (Version None)
Quarter: 2009Q2

REPORT INFORMATION
  Report Type: 
  Country: None (occurrence: None)
  Receive Date: 20090409
  Receipt Date: 20090401
  Transmission Date: 20091009
  Serious: Yes (Hospitalization)
  Sender: FDA-Public Use
  Company Number: 2009SP002636

PATIENT
  Age: 29 Year
  Sex: Male
  Weight: 74 kg

DRUGS (1)
  1. DESLORATADINE [Suspect]
     Indication: RHINITIS
     Dosage: 5 MG; QD; PO
     Route: 048
     Dates: start: 20090126, end: 20090126

REACTIONS (3)
  - CONFUSIONAL STATE [None]
  - EPILEPSY [None]
  - TONGUE BITING [None]
